FAERS Safety Report 22694237 (Version 10)
Quarter: 2025Q4

REPORT INFORMATION
  Report Type: Spontaneous
  Country: CA (occurrence: CA)
  Receive Date: 20230711
  Receipt Date: 20251218
  Transmission Date: 20260118
  Serious: Yes (Hospitalization, Other)
  Sender: MERCK SHARP & DOHME LLC
  Company Number: None

PATIENT
  Age: 42 Year
  Sex: Male

DRUGS (95)
  1. JANUVIA [Suspect]
     Active Substance: SITAGLIPTIN PHOSPHATE
     Indication: Diabetes mellitus
     Dosage: 100 MG 1 EVERY 1 DAYS
     Route: 048
  2. JANUVIA [Suspect]
     Active Substance: SITAGLIPTIN PHOSPHATE
     Indication: Diabetes mellitus
     Dosage: 100 MG 1 EVERY 1 DAYS
     Route: 048
  3. JANUVIA [Suspect]
     Active Substance: SITAGLIPTIN PHOSPHATE
     Indication: Diabetes mellitus
     Dosage: DOSE DESCRIPTION : 100 MILLIGRAM, 1 EVERY 1 DAYS (QD)?DAILY DOSE : 100 MILLIGRAM
     Route: 048
  4. JANUVIA [Suspect]
     Active Substance: SITAGLIPTIN PHOSPHATE
     Indication: Diabetes mellitus
     Dosage: DOSE DESCRIPTION : 100 MILLIGRAM, 1 EVERY 1 DAYS (QD)?DAILY DOSE : 100 MILLIGRAM
     Route: 048
  5. JANUVIA [Suspect]
     Active Substance: SITAGLIPTIN PHOSPHATE
     Indication: Diabetes mellitus
     Dosage: DOSE DESCRIPTION : 100 MILLIGRAM, 1 EVERY 1 DAYS (QD)?DAILY DOSE : 100 MILLIGRAM
     Route: 048
  6. ABILIFY MAINTENA [Suspect]
     Active Substance: ARIPIPRAZOLE
     Indication: Psychotic disorder
     Dosage: DOSE DESCRIPTION : 400 MILLIGRAM, 1 EVERY 1 MONTH?DAILY DOSE : 13.2 MILLIGRAM?REGIMEN DOSE : 400 ...
     Route: 030
  7. AMITRIPTYLINE [Suspect]
     Active Substance: AMITRIPTYLINE
     Indication: Sleep disorder
     Dosage: DOSE DESCRIPTION : 10 MILLIGRAM, 1 EVERY 1 DAYS
     Route: 065
  8. AMITRIPTYLINE [Suspect]
     Active Substance: AMITRIPTYLINE
     Indication: Sleep disorder
     Dosage: DOSE DESCRIPTION : 10 MILLIGRAM, 1 EVERY 1 DAYS (QD)?DAILY DOSE : 10 MILLIGRAM
     Route: 048
  9. AMITRIPTYLINE [Suspect]
     Active Substance: AMITRIPTYLINE
     Indication: Sleep disorder
     Route: 065
  10. APIDRA [Suspect]
     Active Substance: INSULIN GLULISINE
     Indication: Diabetes mellitus
     Dosage: DOSE DESCRIPTION : 2 EVERY 1 DAYS
     Route: 058
  11. APIDRA [Suspect]
     Active Substance: INSULIN GLULISINE
     Indication: Diabetes mellitus
     Dosage: DOSE DESCRIPTION : 2 EVERY 1 DAYS
     Route: 058
  12. APIDRA [Suspect]
     Active Substance: INSULIN GLULISINE
     Indication: Diabetes mellitus
     Dosage: DOSE DESCRIPTION : 1 EVERY 5 DAYS
     Route: 058
  13. APIDRA [Suspect]
     Active Substance: INSULIN GLULISINE
     Indication: Diabetes mellitus
     Dosage: DOSE DESCRIPTION : 2 EVERY 1 DAYS (BID); FORM: SOLUTION SUBCUTANEOUS
     Route: 058
  14. APIDRA [Suspect]
     Active Substance: INSULIN GLULISINE
     Indication: Diabetes mellitus
     Dosage: 1 EVERY 12 HOURS
     Route: 058
  15. APIDRA [Suspect]
     Active Substance: INSULIN GLULISINE
     Indication: Diabetes mellitus
     Dosage: 1 EVERY 12 HOURS
     Route: 058
  16. APIDRA [Suspect]
     Active Substance: INSULIN GLULISINE
     Indication: Diabetes mellitus
     Dosage: DOSE FORM: SOLUTION SUBCUTANEOUS, 1 EVERY 0.5 DAYS
     Route: 058
  17. COCAINE [Suspect]
     Active Substance: COCAINE
     Indication: Product used for unknown indication
     Route: 065
  18. DOXEPIN HYDROCHLORIDE [Suspect]
     Active Substance: DOXEPIN HYDROCHLORIDE
     Indication: Sleep disorder
     Dosage: DOSE DESCRIPTION : UNK
     Route: 048
  19. DOXEPIN HYDROCHLORIDE [Suspect]
     Active Substance: DOXEPIN HYDROCHLORIDE
     Indication: Sleep disorder
     Dosage: DOSE DESCRIPTION : 10 MILLIGRAM, 1 EVERY 1 DAY
     Route: 065
  20. DOXEPIN HYDROCHLORIDE [Suspect]
     Active Substance: DOXEPIN HYDROCHLORIDE
     Indication: Sleep disorder
     Dosage: DOSE DESCRIPTION : 10 MILLIGRAM, 1 EVERY 1 DAYS (QD)?DAILY DOSE : 10 MILLIGRAM
     Route: 048
  21. DOXEPIN HYDROCHLORIDE [Suspect]
     Active Substance: DOXEPIN HYDROCHLORIDE
     Indication: Sleep disorder
     Dosage: DOSE DESCRIPTION : 10 MILLIGRAM, 1 EVERY 1 DAY
     Route: 048
  22. DOXEPIN HYDROCHLORIDE [Suspect]
     Active Substance: DOXEPIN HYDROCHLORIDE
     Indication: Sleep disorder
     Dosage: DOSE DESCRIPTION : UNK
     Route: 065
  23. DOXEPIN HYDROCHLORIDE [Suspect]
     Active Substance: DOXEPIN HYDROCHLORIDE
     Indication: Sleep disorder
     Dosage: DOSE DESCRIPTION : UNK
     Route: 065
  24. GLICLAZIDE [Suspect]
     Active Substance: GLICLAZIDE
     Indication: Product used for unknown indication
     Dosage: 30 MG 1 EVERY 0.5 DAYS
     Route: 048
  25. GLICLAZIDE [Suspect]
     Active Substance: GLICLAZIDE
     Indication: Product used for unknown indication
     Dosage: DOSE DESCRIPTION : 30 MILLIGRAM
     Route: 048
  26. GLICLAZIDE [Suspect]
     Active Substance: GLICLAZIDE
     Indication: Product used for unknown indication
     Dosage: 60 MG 1 EVERY 12 HOURS
     Route: 048
  27. GLICLAZIDE [Suspect]
     Active Substance: GLICLAZIDE
     Indication: Product used for unknown indication
     Dosage: DOSE DESCRIPTION : 30 MILLIGRAM, 2 EVERY 1 DAYS (BID)?DAILY DOSE : 60 MILLIGRAM
     Route: 048
  28. GLICLAZIDE [Suspect]
     Active Substance: GLICLAZIDE
     Indication: Product used for unknown indication
     Dosage: DOSE DESCRIPTION : 60 MILLIGRAM, 2 EVERY 1 DAYS (BID)?DAILY DOSE : 120 MILLIGRAM
     Route: 048
  29. GLICLAZIDE [Suspect]
     Active Substance: GLICLAZIDE
     Indication: Product used for unknown indication
     Dosage: DOSE DESCRIPTION : 30 MILLIGRAM, 2 EVERY 1 DAYS (BID)?DAILY DOSE : 60 MILLIGRAM
     Route: 048
  30. GLICLAZIDE [Suspect]
     Active Substance: GLICLAZIDE
     Indication: Product used for unknown indication
     Dosage: DOSE DESCRIPTION : 60 MILLIGRAM, 2 EVERY 1 DAYS (BID)?DAILY DOSE : 120 MILLIGRAM
     Route: 065
  31. GLICLAZIDE [Suspect]
     Active Substance: GLICLAZIDE
     Indication: Product used for unknown indication
     Dosage: DOSE DESCRIPTION : 60 MILLIGRAM
     Route: 048
  32. GLICLAZIDE [Suspect]
     Active Substance: GLICLAZIDE
     Indication: Product used for unknown indication
     Dosage: DOSE DESCRIPTION : 30 MILLIGRAM
     Route: 048
  33. GLICLAZIDE [Suspect]
     Active Substance: GLICLAZIDE
     Indication: Product used for unknown indication
     Dosage: DOSE DESCRIPTION : 30 MILLIGRAM, 2 EVERY 1 DAYS (BID)?DAILY DOSE : 60 MILLIGRAM
     Route: 048
  34. GLICLAZIDE [Suspect]
     Active Substance: GLICLAZIDE
     Indication: Product used for unknown indication
     Dosage: DOSE DESCRIPTION : 60 MILLIGRAM
     Route: 065
  35. DIVALPROEX SODIUM [Suspect]
     Active Substance: DIVALPROEX SODIUM
     Indication: Product used for unknown indication
     Dosage: DOSE DESCRIPTION : 500 MILLIGRAM, 1 EVERY 12 HOURS (Q12H); TABLET, DELAYED RELEASE?DAILY DOSE : 1...
     Route: 048
  36. DIVALPROEX SODIUM [Suspect]
     Active Substance: DIVALPROEX SODIUM
     Indication: Product used for unknown indication
     Dosage: DOSE DESCRIPTION : 500 MILLIGRAM, 1 EVERY .5 DAYS
     Route: 048
  37. DIVALPROEX SODIUM [Suspect]
     Active Substance: DIVALPROEX SODIUM
     Indication: Product used for unknown indication
     Dosage: DOSE DESCRIPTION : 500 MILLIGRAM, 1 EVERY 12 HOURS (Q12H); FORM: UNKNOWN?DAILY DOSE : 1000 MILLIGRAM
     Route: 048
  38. DIVALPROEX SODIUM [Suspect]
     Active Substance: DIVALPROEX SODIUM
     Indication: Product used for unknown indication
     Dosage: 500.0 MILLIGRAM 1 EVERY 0.5 DAYS
     Route: 048
  39. DIVALPROEX SODIUM [Suspect]
     Active Substance: DIVALPROEX SODIUM
     Indication: Product used for unknown indication
     Dosage: 500.0 MILLIGRAM 1 EVERY 12 HOURS
     Route: 048
  40. DIVALPROEX SODIUM [Suspect]
     Active Substance: DIVALPROEX SODIUM
     Indication: Product used for unknown indication
     Dosage: 500.0 MILLIGRAM 1 EVERY 5 DAYS
     Route: 048
  41. JARDIANCE [Suspect]
     Active Substance: EMPAGLIFLOZIN
     Indication: Diabetes mellitus
     Dosage: DOSE DESCRIPTION : 25 MILLIGRAM
     Route: 048
  42. JARDIANCE [Suspect]
     Active Substance: EMPAGLIFLOZIN
     Indication: Diabetes mellitus
     Dosage: DOSE DESCRIPTION : 25 MILLIGRAM
     Route: 048
  43. JARDIANCE [Suspect]
     Active Substance: EMPAGLIFLOZIN
     Indication: Diabetes mellitus
     Dosage: DOSE DESCRIPTION : 25 MILLIGRAM, QD?DAILY DOSE : 25 MILLIGRAM
     Route: 048
  44. METHAMPHETAMINE HYDROCHLORIDE [Suspect]
     Active Substance: METHAMPHETAMINE HYDROCHLORIDE
     Indication: Product used for unknown indication
     Dosage: DOSE DESCRIPTION : UNK
     Route: 065
  45. METHAMPHETAMINE HYDROCHLORIDE [Suspect]
     Active Substance: METHAMPHETAMINE HYDROCHLORIDE
     Indication: Product used for unknown indication
     Dosage: DOSE DESCRIPTION : UNK
     Route: 065
  46. METFORMIN [Suspect]
     Active Substance: METFORMIN HYDROCHLORIDE
     Indication: Diabetes mellitus
     Dosage: DOSE DESCRIPTION : 500 MILLIGRAM, 2 EVERY 1 DAYS (BID)?DAILY DOSE : 1000 MILLIGRAM
     Route: 048
  47. METFORMIN [Suspect]
     Active Substance: METFORMIN HYDROCHLORIDE
     Indication: Diabetes mellitus
     Dosage: DOSE DESCRIPTION : 500 MG, 1 EVERY 12 HOURS (Q12H)?DAILY DOSE : 1000 MILLIGRAM
     Route: 048
  48. METFORMIN [Suspect]
     Active Substance: METFORMIN HYDROCHLORIDE
     Indication: Diabetes mellitus
     Dosage: DOSE DESCRIPTION : 500 MILLIGRAM, 2 EVERY 1 DAYS (BID)?DAILY DOSE : 1000 MILLIGRAM
     Route: 048
  49. METFORMIN [Suspect]
     Active Substance: METFORMIN HYDROCHLORIDE
     Indication: Diabetes mellitus
     Dosage: DOSE DESCRIPTION : 1 EVERY 5 DAYS?DAILY DOSE : 100 MILLIGRAM?REGIMEN DOSE : 500  MILLIGRAM
     Route: 048
  50. ROSUVASTATIN CALCIUM [Suspect]
     Active Substance: ROSUVASTATIN CALCIUM
     Indication: Blood cholesterol abnormal
     Dosage: DOSE DESCRIPTION : 10 MILLIGRAM, 1 EVERY 1 DAYS (QD); FORM: NOT SPECIFIED?DAILY DOSE : 10 MILLIGRAM
     Route: 048
  51. ROSUVASTATIN CALCIUM [Suspect]
     Active Substance: ROSUVASTATIN CALCIUM
     Indication: Blood cholesterol abnormal
     Dosage: DOSE DESCRIPTION : 10 MILLIGRAM, 1 EVERY 1 DAYS (QD); FORM: NOT SPECIFIED?DAILY DOSE : 10 MILLIGRAM
     Route: 048
  52. SEMAGLUTIDE [Suspect]
     Active Substance: SEMAGLUTIDE
     Indication: Weight decreased
     Dosage: DOSE DESCRIPTION : 1 MILLIGRAM, 1 EVERY 1 WEEKS (QW)?DAILY DOSE : 0.143 MILLIGRAM?REGIMEN DOSE : ...
     Route: 058
  53. SEMAGLUTIDE [Suspect]
     Active Substance: SEMAGLUTIDE
     Indication: Weight decreased
     Dosage: DOSE DESCRIPTION : UNK
     Route: 065
  54. SEMAGLUTIDE [Suspect]
     Active Substance: SEMAGLUTIDE
     Indication: Weight decreased
     Dosage: DOSE DESCRIPTION : UNK
     Route: 065
  55. SEMAGLUTIDE [Suspect]
     Active Substance: SEMAGLUTIDE
     Indication: Weight decreased
     Dosage: DOSE DESCRIPTION : 1 EVERY 1 WEEKS (QW)?DAILY DOSE : 0.143 MILLIGRAM?REGIMEN DOSE : 1  MILLIGRAM
     Route: 058
  56. SEMAGLUTIDE [Suspect]
     Active Substance: SEMAGLUTIDE
     Indication: Weight decreased
     Dosage: 1 EVERY 1 WEEKS
     Route: 058
  57. SEMAGLUTIDE [Suspect]
     Active Substance: SEMAGLUTIDE
     Indication: Weight decreased
     Dosage: FORMULATION: SOLUTION SUBCUTANEOUS, 1 MG EVERY 1 WEEKS
     Route: 058
  58. TOPIRAMATE [Suspect]
     Active Substance: TOPIRAMATE
     Indication: Anxiety
     Dosage: DOSE DESCRIPTION : 25 MILLIGRAM
     Route: 048
  59. TOPIRAMATE [Suspect]
     Active Substance: TOPIRAMATE
     Indication: Anxiety
     Dosage: DOSE DESCRIPTION : 25 MILLIGRAM
     Route: 048
  60. TOPIRAMATE [Suspect]
     Active Substance: TOPIRAMATE
     Indication: Anxiety
     Dosage: DOSE DESCRIPTION : 25 MILLIGRAM, 1 EVERY 1 DAYS (QD)?DAILY DOSE : 25 MILLIGRAM
     Route: 048
  61. TRANDOLAPRIL [Suspect]
     Active Substance: TRANDOLAPRIL
     Indication: Blood pressure abnormal
     Dosage: DOSE DESCRIPTION : 1 MILLIGRAM, 1 EVERY 1 DAYS (QD)?DAILY DOSE : 1 MILLIGRAM
     Route: 048
  62. TRANDOLAPRIL [Suspect]
     Active Substance: TRANDOLAPRIL
     Indication: Blood pressure abnormal
     Dosage: DOSE DESCRIPTION : 1 MILLIGRAM
     Route: 048
  63. TOUJEO [Suspect]
     Active Substance: INSULIN GLARGINE
     Indication: Diabetes mellitus
     Dosage: DOSE DESCRIPTION : 25 INTERNATIONAL UNIT, 1 EVERY 1 DAYS (QD)?DAILY DOSE : 25 INTERNATIONAL UNIT
     Route: 058
  64. TOUJEO [Suspect]
     Active Substance: INSULIN GLARGINE
     Indication: Diabetes mellitus
     Dosage: DOSE DESCRIPTION : 25 INTERNATIONAL UNIT, 1 EVERY 1 DAYS (QD)?DAILY DOSE : 25 INTERNATIONAL UNIT
     Route: 058
  65. TRAZODONE HYDROCHLORIDE [Suspect]
     Active Substance: TRAZODONE HYDROCHLORIDE
     Indication: Sleep disorder
     Dosage: DOSE DESCRIPTION : 50 MILLIGRAM
     Route: 048
  66. TRAZODONE HYDROCHLORIDE [Suspect]
     Active Substance: TRAZODONE HYDROCHLORIDE
     Indication: Sleep disorder
     Dosage: DOSE DESCRIPTION : 50 MILLIGRAM
     Route: 048
  67. TRAZODONE HYDROCHLORIDE [Suspect]
     Active Substance: TRAZODONE HYDROCHLORIDE
     Indication: Sleep disorder
     Dosage: DOSE DESCRIPTION : 50 MILLIGRAM, 1 EVERY 1 DAYS (QD)?DAILY DOSE : 50 MILLIGRAM
     Route: 048
  68. RILPIVIRINE [Suspect]
     Active Substance: RILPIVIRINE
     Indication: C-kit gene mutation
     Dosage: DOSE DESCRIPTION : UNK
     Route: 030
  69. RILPIVIRINE [Suspect]
     Active Substance: RILPIVIRINE
     Indication: C-kit gene mutation
     Dosage: DOSE DESCRIPTION : UNK
     Route: 030
  70. RILPIVIRINE [Suspect]
     Active Substance: RILPIVIRINE
     Indication: C-kit gene mutation
     Dosage: DOSE DESCRIPTION : UNK
     Route: 030
  71. RILPIVIRINE [Suspect]
     Active Substance: RILPIVIRINE
     Indication: C-kit gene mutation
     Dosage: DOSE DESCRIPTION : UNK
     Route: 030
  72. RILPIVIRINE [Suspect]
     Active Substance: RILPIVIRINE
     Indication: C-kit gene mutation
     Route: 030
  73. RILPIVIRINE [Suspect]
     Active Substance: RILPIVIRINE
     Indication: C-kit gene mutation
     Route: 030
  74. RILPIVIRINE [Suspect]
     Active Substance: RILPIVIRINE
     Indication: C-kit gene mutation
     Dosage: 400 MG EVERY 12 MONTHS
     Route: 030
  75. SITAGLIPTIN [Suspect]
     Active Substance: SITAGLIPTIN
     Indication: Diabetes mellitus
     Dosage: DOSE DESCRIPTION : 100 MILLIGRAM, 1 EVERY 1 DAY?DAILY DOSE : 100 MILLIGRAM
     Route: 048
  76. ABACAVIR SULFATE\DOLUTEGRAVIR SODIUM\LAMIVUDINE [Concomitant]
     Active Substance: ABACAVIR SULFATE\DOLUTEGRAVIR SODIUM\LAMIVUDINE
     Indication: HIV infection
     Dosage: DOSE DESCRIPTION : UNK
     Route: 065
  77. ABACAVIR SULFATE\DOLUTEGRAVIR SODIUM\LAMIVUDINE [Concomitant]
     Active Substance: ABACAVIR SULFATE\DOLUTEGRAVIR SODIUM\LAMIVUDINE
     Indication: HIV infection
     Dosage: DOSE DESCRIPTION : UNK
     Route: 065
  78. ABACAVIR SULFATE\DOLUTEGRAVIR SODIUM\LAMIVUDINE [Concomitant]
     Active Substance: ABACAVIR SULFATE\DOLUTEGRAVIR SODIUM\LAMIVUDINE
     Indication: HIV infection
     Dosage: DOSE DESCRIPTION : UNK
     Route: 065
  79. ABACAVIR SULFATE\DOLUTEGRAVIR SODIUM\LAMIVUDINE [Concomitant]
     Active Substance: ABACAVIR SULFATE\DOLUTEGRAVIR SODIUM\LAMIVUDINE
     Indication: HIV infection
     Dosage: DOSE DESCRIPTION : UNK
     Route: 065
  80. EDURANT [Concomitant]
     Active Substance: RILPIVIRINE HYDROCHLORIDE
     Indication: HIV infection
     Dosage: DOSE DESCRIPTION : 25 MILLIGRAM
     Route: 048
  81. CABOTEGRAVIR / CABOTEGRAVIR SODIUM [Concomitant]
     Indication: HIV infection
     Dosage: DOSE DESCRIPTION : 30 MILLIGRAM EVERY 1 DAYS
     Route: 048
  82. CABOTEGRAVIR / CABOTEGRAVIR SODIUM [Concomitant]
     Indication: HIV infection
     Dosage: DOSE DESCRIPTION : 30 MILLIGRAM
     Route: 048
  83. CABOTEGRAVIR / CABOTEGRAVIR SODIUM [Concomitant]
     Indication: HIV infection
     Dosage: DOSE DESCRIPTION : 30 MILLIGRAM
     Route: 048
  84. CABOTEGRAVIR / CABOTEGRAVIR SODIUM [Concomitant]
     Indication: HIV infection
     Dosage: DOSE DESCRIPTION : 30 MILLIGRAM
     Route: 048
  85. CABOTEGRAVIR [Suspect]
     Active Substance: CABOTEGRAVIR
     Indication: HIV infection
     Route: 030
  86. CABOTEGRAVIR [Suspect]
     Active Substance: CABOTEGRAVIR
     Indication: HIV infection
     Dosage: 30 MG
     Route: 048
  87. CABOTEGRAVIR [Suspect]
     Active Substance: CABOTEGRAVIR
     Indication: HIV infection
     Route: 030
  88. CABOTEGRAVIR [Suspect]
     Active Substance: CABOTEGRAVIR
     Indication: HIV infection
     Route: 030
  89. CABOTEGRAVIR [Suspect]
     Active Substance: CABOTEGRAVIR
     Indication: HIV infection
     Route: 030
  90. CABOTEGRAVIR [Suspect]
     Active Substance: CABOTEGRAVIR
     Indication: HIV infection
     Dosage: 400 MG 1 EVERY 2 MONTHS
     Route: 030
  91. AMITRIPTYLINE HYDROCHLORIDE [Suspect]
     Active Substance: AMITRIPTYLINE HYDROCHLORIDE
     Indication: Sleep disorder
     Dosage: DOSE DESCRIPTION : 10 MILLIGRAM
     Route: 065
  92. AMITRIPTYLINE HYDROCHLORIDE [Suspect]
     Active Substance: AMITRIPTYLINE HYDROCHLORIDE
     Indication: Sleep disorder
     Dosage: DOSE DESCRIPTION : 10 MILLIGRAM
     Route: 065
  93. AMITRIPTYLINE HYDROCHLORIDE [Suspect]
     Active Substance: AMITRIPTYLINE HYDROCHLORIDE
     Indication: Sleep disorder
     Route: 065
  94. VALPROIC ACID [Suspect]
     Active Substance: VALPROIC ACID
     Indication: Product used for unknown indication
     Dosage: DOSE DESCRIPTION : 500 MILLIGRAM, BID / EVERY 12 HOURS?DAILY DOSE : 1000 MILLIGRAM
     Route: 065
  95. METHOTREXATE SODIUM [Suspect]
     Active Substance: METHOTREXATE SODIUM
     Indication: Product used for unknown indication
     Dosage: FORMULATION: SOLUTION INTRA-ARTERIAL
     Route: 065

REACTIONS (6)
  - Aggression [Recovered/Resolved]
  - Inappropriate schedule of product administration [Recovered/Resolved]
  - Product dose omission issue [Recovered/Resolved]
  - Product use in unapproved indication [Recovered/Resolved]
  - Psychotic disorder [Recovered/Resolved]
  - Substance use [Recovered/Resolved]
